FAERS Safety Report 6256903-9 (Version None)
Quarter: 2009Q3

REPORT INFORMATION
  Report Type: 
  Country: None (occurrence: None)
  Receive Date: 20090706
  Receipt Date: 20090629
  Transmission Date: 20100115
  Serious: Yes (Hospitalization)
  Sender: FDA-Public Use
  Company Number: DK-JNJFOC-20090700956

PATIENT
  Sex: Female
  Weight: 80 kg

DRUGS (10)
  1. BRENTAN [Suspect]
     Route: 048
  2. BRENTAN [Suspect]
     Indication: FUNGAL INFECTION
     Route: 048
  3. MAREVAN [Interacting]
     Route: 048
  4. MAREVAN [Interacting]
     Route: 048
  5. MAREVAN [Interacting]
     Indication: ATRIAL FIBRILLATION
     Route: 048
  6. DIGOXIN [Concomitant]
     Route: 048
  7. BISOPROLOL [Concomitant]
  8. CENTYL [Concomitant]
     Route: 048
  9. ACETYLSALICYLIC ACID [Concomitant]
     Route: 048
  10. VITAMIN K [Concomitant]
     Indication: ANTICOAGULANT THERAPY

REACTIONS (3)
  - CONTUSION [None]
  - DRUG INTERACTION [None]
  - HAEMORRHAGE URINARY TRACT [None]
